FAERS Safety Report 6248809-6 (Version None)
Quarter: 2009Q2

REPORT INFORMATION
  Report Type: 
  Country: None (occurrence: None)
  Receive Date: 20090629
  Receipt Date: 20090429
  Transmission Date: 20091009
  Serious: No
  Sender: FDA-Public Use
  Company Number: US-TYCO HEALTHCARE/MALLINCKRODT-T200900960

PATIENT
  Sex: Female

DRUGS (11)
  1. TECHNETIUM TC 99M SESTAMIBI [Suspect]
     Indication: CARDIAC STRESS TEST
     Dosage: UNK, SINGLE
     Route: 042
     Dates: start: 20090429, end: 20090429
  2. ULTRA-TECHNEKOW [Suspect]
     Indication: CARDIAC STRESS TEST
     Dosage: 15.2 MCI, SINGLE
     Route: 042
     Dates: start: 20090429, end: 20090429
  3. ETODOLAC [Concomitant]
     Dosage: 400 MG, QOD
  4. HYDROCHLOROTHIAZIDE [Concomitant]
     Dosage: 12.5 MG (1/2 TAB), QD
  5. LEVOTHYROXINE SODIUM [Concomitant]
     Dosage: 112 UG (MCG), QD
  6. METOPROLOL SUCCINATE [Concomitant]
     Dosage: 50 MG, QD
  7. AMLODIPINE [Concomitant]
     Dosage: 5 MG, QD
  8. ALLOPURINOL [Concomitant]
     Dosage: 300 MG, QD
  9. ASPIRIN [Concomitant]
     Dosage: 81 MG, QOD
  10. PRILOSEC [Concomitant]
     Dosage: UNK, DAILY
  11. HYDROXYCHLOROQUINE SULFATE [Concomitant]
     Dosage: 200 MG, BID

REACTIONS (4)
  - ERYTHEMA [None]
  - FLUSHING [None]
  - PRURITUS [None]
  - URTICARIA [None]
